FAERS Safety Report 20023530 (Version 3)
Quarter: 2021Q4

REPORT INFORMATION
  Report Type: Spontaneous
  Country: US (occurrence: US)
  Receive Date: 20211102
  Receipt Date: 20211215
  Transmission Date: 20220303
  Serious: Yes (Other)
  Sender: FDA-Public Use
  Company Number: US-AMNEAL PHARMACEUTICALS-2021-AMRX-04389

PATIENT
  Age: 72 Year
  Sex: Male

DRUGS (4)
  1. RYTARY [Suspect]
     Active Substance: CARBIDOPA\LEVODOPA
     Indication: Parkinson^s disease
     Dosage: 23.75/95 1 CAPSULES, 3X/DAY
     Route: 048
     Dates: start: 20211021, end: 202110
  2. RYTARY [Suspect]
     Active Substance: CARBIDOPA\LEVODOPA
     Dosage: 23.75/95 3 CAPSULES, 3 /DAY
     Route: 048
     Dates: start: 202110, end: 202111
  3. RYTARY [Suspect]
     Active Substance: CARBIDOPA\LEVODOPA
     Dosage: 61.25/245 MG, 3 CAPSULES, TID
     Route: 048
     Dates: start: 20211105
  4. RYTARY [Suspect]
     Active Substance: CARBIDOPA\LEVODOPA
     Dosage: HIGHER DOSAGE 61.25/245 MG (5-6 HOURS BETWEEN DOSAGE)
     Route: 048
     Dates: start: 202111

REACTIONS (4)
  - Hypertension [Recovered/Resolved]
  - Condition aggravated [Unknown]
  - Therapeutic product effect incomplete [Recovered/Resolved]
  - Therapeutic response shortened [Recovered/Resolved]

NARRATIVE: CASE EVENT DATE: 20211001
